FAERS Safety Report 6019352-4 (Version None)
Quarter: 2008Q4

REPORT INFORMATION
  Report Type: 
  Country: None (occurrence: None)
  Receive Date: 20081224
  Receipt Date: 20081219
  Transmission Date: 20090506
  Serious: Yes (Hospitalization, Disabling)
  Sender: FDA-Public Use
  Company Number: US-ASTRAZENECA-2008AC03211

PATIENT
  Age: 34 Year
  Sex: Female

DRUGS (3)
  1. QUETIAPINE [Suspect]
     Route: 048
  2. ACETAMINOPHEN AND OXYCODONE HCL [Suspect]
     Route: 048
  3. CHLORAL HYDRATE [Suspect]
     Route: 048

REACTIONS (9)
  - ANAEMIA [None]
  - ELECTROCARDIOGRAM QT SHORTENED [None]
  - HEPATIC FUNCTION ABNORMAL [None]
  - LEUKOPENIA [None]
  - MULTIPLE DRUG OVERDOSE [None]
  - MYELOPATHY [None]
  - RENAL FAILURE [None]
  - SUICIDE ATTEMPT [None]
  - TRANSAMINASES INCREASED [None]
